FAERS Safety Report 23121906 (Version 1)
Quarter: 2023Q4

REPORT INFORMATION
  Report Type: Spontaneous
  Country: FR (occurrence: FR)
  Receive Date: 20231030
  Receipt Date: 20231030
  Transmission Date: 20240110
  Serious: Yes (Other)
  Sender: FDA-Public Use
  Company Number: FR-ENDO PHARMACEUTICALS INC-2023-005545

PATIENT
  Age: 66 Year
  Sex: Male

DRUGS (5)
  1. EDEX [Suspect]
     Active Substance: ALPROSTADIL
     Indication: Erectile dysfunction
     Dosage: 5 MICROGRAM, DAILY
     Route: 048
     Dates: start: 2022
  2. EDEX [Suspect]
     Active Substance: ALPROSTADIL
     Indication: Erectile dysfunction
     Dosage: 5 MICROGRAM, DAILY
     Route: 048
     Dates: start: 2022
  3. EDEX [Suspect]
     Active Substance: ALPROSTADIL
     Indication: Erectile dysfunction
     Dosage: 5 MICROGRAM, DAILY
     Route: 048
     Dates: start: 2022
  4. EDEX [Suspect]
     Active Substance: ALPROSTADIL
     Indication: Erectile dysfunction
     Dosage: 5 MICROGRAM, DAILY
     Route: 048
     Dates: start: 2022
  5. EDEX [Suspect]
     Active Substance: ALPROSTADIL
     Indication: Erectile dysfunction
     Dosage: 5 MICROGRAM, DAILY
     Route: 048
     Dates: start: 2022

REACTIONS (1)
  - Mucocutaneous ulceration [Not Recovered/Not Resolved]

NARRATIVE: CASE EVENT DATE: 20230302
